FAERS Safety Report 20127635 (Version 2)
Quarter: 2022Q1

REPORT INFORMATION
  Report Type: Report from Study
  Country: FR (occurrence: FR)
  Receive Date: 20211129
  Receipt Date: 20220217
  Transmission Date: 20220424
  Serious: Yes (Death, Other)
  Sender: FDA-Public Use
  Company Number: FR-PFIZER INC-202101660444

PATIENT

DRUGS (4)
  1. OXALIPLATIN [Suspect]
     Active Substance: OXALIPLATIN
     Indication: Bile duct cancer
     Dosage: 85 MG/M2, CYCLIC (2 HOURS, ON DAY 1 OVER 46 HOURS, EVERY 2 WEEKS)
  2. LEUCOVORIN CALCIUM [Suspect]
     Active Substance: LEUCOVORIN CALCIUM
     Indication: Biliary cancer metastatic
     Dosage: 400 MG/M2, CYCLIC (OVER 2 HOURS, EACH ONCE DAILY ON DAY 1, EVERY 2 WEEKS)
  3. FLUOROURACIL [Suspect]
     Active Substance: FLUOROURACIL
     Indication: Biliary cancer metastatic
     Dosage: 2400 MG/M2, CYCLIC (ON DAY 1 OVER 46 HOURS, EVERY 2 WEEKS)
  4. IRINOTECAN HYDROCHLORIDE [Suspect]
     Active Substance: IRINOTECAN HYDROCHLORIDE
     Indication: Bile duct cancer
     Dosage: 180 MG/M2, CYCLIC (180 MG/M2 OVER 90 MINUTES)

REACTIONS (1)
  - Respiratory failure [Fatal]
